FAERS Safety Report 5845003-5 (Version None)
Quarter: 2008Q3

REPORT INFORMATION
  Report Type: 
  Country: None (occurrence: None)
  Receive Date: 20080814
  Receipt Date: 20080805
  Transmission Date: 20090109
  Serious: Yes (Death)
  Sender: FDA-Public Use
  Company Number: US-ROCHE-578147

PATIENT
  Sex: Male
  Weight: 88.5 kg

DRUGS (6)
  1. MYCOPHENOLATE MOFETIL [Suspect]
     Route: 048
     Dates: start: 20080625, end: 20080706
  2. STEROID NOS [Concomitant]
     Indication: PSORIASIS
  3. DIGITEK [Concomitant]
     Indication: CARDIAC DISORDER
     Route: 048
  4. LISINOPRIL [Concomitant]
     Indication: BLOOD PRESSURE
     Route: 048
  5. BENADRYL [Concomitant]
     Route: 048
  6. ASPIRIN [Concomitant]
     Route: 048

REACTIONS (1)
  - SUDDEN CARDIAC DEATH [None]
